FAERS Safety Report 4801739-6 (Version None)
Quarter: 2005Q4

REPORT INFORMATION
  Report Type: 
  Country: None (occurrence: None)
  Receive Date: 20051014
  Receipt Date: 20051014
  Transmission Date: 20060501
  Serious: No
  Sender: FDA-Public Use
  Company Number: None

PATIENT
  Age: 23 Year
  Sex: Female
  Weight: 52.6173 kg

DRUGS (1)
  1. LEXAPRO [Suspect]
     Dosage: 1  10MG PILL   DAILY   PO
     Route: 048
     Dates: start: 20050430, end: 20051005

REACTIONS (8)
  - AMNESIA [None]
  - DRUG WITHDRAWAL SYNDROME [None]
  - FATIGUE [None]
  - HEADACHE [None]
  - INFLUENZA LIKE ILLNESS [None]
  - INSOMNIA [None]
  - PAIN [None]
  - URINARY TRACT DISORDER [None]
